FAERS Safety Report 7783317-2 (Version None)
Quarter: 2011Q3

REPORT INFORMATION
  Report Type: 
  Country: None (occurrence: None)
  Receive Date: 20110928
  Receipt Date: 20110924
  Transmission Date: 20111222
  Serious: Yes (Death, Life-Threatening, Hospitalization, Other)
  Sender: FDA-Public Use
  Company Number: AU-JNJFOC-20110805068

PATIENT
  Sex: Male
  Weight: 59.1 kg

DRUGS (36)
  1. ABIRATERONE ACETATE [Suspect]
     Indication: PROSTATE CANCER METASTATIC
     Route: 048
     Dates: start: 20110725, end: 20110816
  2. DEXAMETHASONE [Concomitant]
     Route: 065
     Dates: start: 20110810, end: 20110811
  3. FENTANYL [Concomitant]
     Indication: PAIN
     Route: 065
     Dates: start: 20110101, end: 20110810
  4. DEXAMETHASONE [Concomitant]
     Indication: PATHOLOGICAL FRACTURE
     Route: 065
     Dates: start: 20110804, end: 20110809
  5. AGAROL LAXATIVE [Concomitant]
     Indication: CONSTIPATION
     Route: 065
     Dates: start: 20110804, end: 20110804
  6. NYSTATIN [Concomitant]
     Indication: OROPHARYNGEAL PAIN
     Route: 065
     Dates: start: 20110816, end: 20110817
  7. NYSTATIN [Concomitant]
     Indication: ABDOMINAL PAIN UPPER
     Route: 065
     Dates: start: 20110816, end: 20110817
  8. NYSTATIN [Concomitant]
     Indication: OESOPHAGEAL PAIN
     Route: 065
     Dates: start: 20110816, end: 20110817
  9. SODIUM BICARBONATE [Concomitant]
     Indication: DENTAL DISORDER PROPHYLAXIS
     Route: 048
     Dates: start: 20110805, end: 20110812
  10. RABEPRAZOLE SODIUM [Concomitant]
     Indication: GASTROOESOPHAGEAL REFLUX DISEASE
     Route: 065
     Dates: start: 20110805, end: 20110812
  11. COLOXYL + SENNA [Concomitant]
     Route: 065
     Dates: start: 20110805, end: 20110810
  12. ENOXAPARIN SODIUM [Concomitant]
     Indication: THROMBOSIS
     Route: 065
     Dates: start: 20110807, end: 20110812
  13. PREDNISONE [Suspect]
     Indication: PROSTATE CANCER METASTATIC
     Route: 065
     Dates: start: 20110725, end: 20110817
  14. DEXAMETHASONE [Concomitant]
     Route: 065
     Dates: start: 20110812, end: 20110816
  15. SORBOLENE CREAM WITH 10% GLYCERINE [Concomitant]
     Indication: THERAPEUTIC PROCEDURE
     Route: 065
     Dates: start: 20110806, end: 20110812
  16. MOVIPREP [Concomitant]
     Indication: CONSTIPATION
     Route: 065
     Dates: start: 20110805, end: 20110809
  17. MOVIPREP [Concomitant]
     Route: 065
     Dates: start: 20110811, end: 20110812
  18. AGAROL LAXATIVE [Concomitant]
     Route: 065
     Dates: start: 20110807, end: 20110807
  19. XYLOCAINE [Concomitant]
     Indication: ABDOMINAL PAIN UPPER
     Route: 065
     Dates: start: 20110807, end: 20110808
  20. CALCITRIOL [Concomitant]
     Indication: HYPOCALCAEMIA
     Route: 065
     Dates: start: 20110804, end: 20110812
  21. MORPHINE SULFATE [Concomitant]
     Indication: SPINAL FRACTURE
     Route: 065
     Dates: start: 20110811, end: 20110812
  22. RED BLOOD CELLS [Concomitant]
     Indication: ANAEMIA
     Route: 065
     Dates: start: 20110805
  23. METOCLOPRAMIDE [Concomitant]
     Indication: NAUSEA
     Route: 065
  24. TEMAZEPAM [Concomitant]
     Indication: INSOMNIA
     Route: 065
     Dates: start: 20110804, end: 20110811
  25. XYLOCAINE [Concomitant]
     Indication: OESOPHAGEAL PAIN
     Route: 065
     Dates: start: 20110807, end: 20110808
  26. MORPHINE SULFATE [Concomitant]
     Route: 065
     Dates: start: 20110804, end: 20110810
  27. LEUPROLIDE ACETATE [Concomitant]
     Indication: HORMONE THERAPY
     Route: 065
     Dates: start: 20081215
  28. TAMSULOSIN HCL [Concomitant]
     Indication: POLLAKIURIA
     Route: 065
     Dates: start: 20110806, end: 20110812
  29. COLOXYL + SENNA [Concomitant]
     Indication: CONSTIPATION
     Route: 065
     Dates: start: 20110811, end: 20110812
  30. ACETAMINOPHEN [Concomitant]
     Indication: SPINAL FRACTURE
     Route: 065
     Dates: start: 20110804, end: 20110810
  31. MORPHINE [Concomitant]
     Indication: PATHOLOGICAL FRACTURE
     Route: 065
     Dates: start: 20110804, end: 20110804
  32. METOCLOPRAMIDE [Concomitant]
     Indication: GASTROOESOPHAGEAL REFLUX DISEASE
     Route: 065
  33. METOCLOPRAMIDE [Concomitant]
     Indication: VOMITING
     Route: 065
  34. PROCHLORPERAZINE [Concomitant]
     Indication: NAUSEA
     Route: 065
     Dates: start: 20110807, end: 20110812
  35. ABIRATERONE ACETATE [Suspect]
     Route: 048
  36. CALCIUM CARBONATE [Concomitant]
     Indication: HYPOCALCAEMIA
     Route: 065
     Dates: start: 20110804, end: 20110811

REACTIONS (3)
  - LUNG INFECTION [None]
  - DISEASE PROGRESSION [None]
  - SPINAL FRACTURE [None]
